FAERS Safety Report 11176718 (Version 3)
Quarter: 2015Q3

REPORT INFORMATION
  Report Type: Report from Study
  Country: None (occurrence: IT)
  Receive Date: 20150610
  Receipt Date: 20150806
  Transmission Date: 20151125
  Serious: Yes (Hospitalization, Other)
  Sender: FDA-Public Use
  Company Number: IT-TEVA-568312ACC

PATIENT
  Age: 78 Year
  Sex: Male

DRUGS (4)
  1. LEDERFOLIN - PFIZER ITALIA S.R.L. [Suspect]
     Active Substance: LEUCOVORIN CALCIUM
     Indication: RECTAL CANCER
     Dosage: 330 MG CYCLICAL
     Route: 042
     Dates: start: 20150504, end: 20150504
  2. FLUOROURACIL. [Suspect]
     Active Substance: FLUOROURACIL
     Indication: RECTAL CANCER
     Dosage: 4670 MG CYCLICAL
     Route: 042
     Dates: start: 20150504, end: 20150504
  3. ZALTRAP [Suspect]
     Active Substance: ZIV-AFLIBERCEPT
     Indication: RECTAL CANCER
     Dosage: 260 MG CYCLICAL (CONCENTRATE FOR SOLUTION FOR INFUSION)
     Route: 042
     Dates: start: 20150504, end: 20150504
  4. IRINOTECAN [Suspect]
     Active Substance: IRINOTECAN
     Indication: RECTAL CANCER
     Dosage: 300 MG CYCLICAL
     Route: 042
     Dates: start: 20150504, end: 20150504

REACTIONS (2)
  - Neutropenia [Recovered/Resolved]
  - Haemorrhoidal haemorrhage [Recovered/Resolved]

NARRATIVE: CASE EVENT DATE: 20150504
